FAERS Safety Report 21742363 (Version 1)
Quarter: 2022Q4

REPORT INFORMATION
  Report Type: Spontaneous
  Country: US (occurrence: US)
  Receive Date: 20221216
  Receipt Date: 20221216
  Transmission Date: 20230113
  Serious: No
  Sender: FDA-Public Use
  Company Number: US-CYCLE PHARMACEUTICALS LTD-2022-CYC-000042

PATIENT

DRUGS (1)
  1. NITYR [Suspect]
     Active Substance: NITISINONE
     Indication: Amino acid metabolism disorder
     Dosage: 1 TABLET, QD
     Route: 048

REACTIONS (1)
  - Influenza [Unknown]
